FAERS Safety Report 7328781-8 (Version None)
Quarter: 2011Q1

REPORT INFORMATION
  Report Type: 
  Country: None (occurrence: None)
  Receive Date: 20110225
  Receipt Date: 20110225
  Transmission Date: 20110831
  Serious: Yes (Other)
  Sender: FDA-Public Use
  Company Number: None

PATIENT
  Sex: Male
  Weight: 83.4619 kg

DRUGS (1)
  1. LEVAQUIN [Suspect]
     Indication: PROSTATITIS
     Dosage: 500 MG ONCE DAILY PO  ONE DOSE
     Route: 048
     Dates: start: 20090824, end: 20090824

REACTIONS (4)
  - MYALGIA [None]
  - INSOMNIA [None]
  - NEUROPATHY PERIPHERAL [None]
  - ASTHENIA [None]
